FAERS Safety Report 15037442 (Version 1)
Quarter: 2018Q2

REPORT INFORMATION
  Report Type: Spontaneous
  Country: GB (occurrence: GB)
  Receive Date: 20180620
  Receipt Date: 20180620
  Transmission Date: 20180711
  Serious: Yes (Other)
  Sender: FDA-Public Use
  Company Number: GB-MYLANLABS-2018M1042978

PATIENT
  Age: 43 Year
  Sex: Male

DRUGS (2)
  1. DESMOPRESSIN [Suspect]
     Active Substance: DESMOPRESSIN
     Indication: POLYURIA
     Route: 045
     Dates: start: 2007
  2. HYDROCORTISONE. [Suspect]
     Active Substance: HYDROCORTISONE
     Indication: CORTISOL DECREASED
     Route: 065

REACTIONS (2)
  - Hypercorticoidism [Unknown]
  - Chorioretinopathy [Unknown]

NARRATIVE: CASE EVENT DATE: 200907
